FAERS Safety Report 16570986 (Version 1)
Quarter: 2019Q3

REPORT INFORMATION
  Report Type: Spontaneous
  Country: US (occurrence: US)
  Receive Date: 20190712
  Receipt Date: 20190712
  Transmission Date: 20191004
  Serious: Yes (Hospitalization)
  Sender: FDA-Public Use
  Company Number: None

PATIENT
  Age: 59 Year
  Sex: Male

DRUGS (16)
  1. FLUDROCORT [Concomitant]
  2. GABAPENTIN. [Concomitant]
     Active Substance: GABAPENTIN
  3. ARANESP [Suspect]
     Active Substance: DARBEPOETIN ALFA
     Indication: ANAEMIA
     Dosage: ?          OTHER FREQUENCY:EVERY TWO WEEKS;?
     Route: 058
     Dates: start: 20180103
  4. ATORVASTATIN [Concomitant]
     Active Substance: ATORVASTATIN
  5. COREG [Concomitant]
     Active Substance: CARVEDILOL
  6. MAGNESIUM [Concomitant]
     Active Substance: MAGNESIUM
  7. PROAIR HFA [Concomitant]
     Active Substance: ALBUTEROL SULFATE
  8. ASPIRIN. [Concomitant]
     Active Substance: ASPIRIN
  9. SODIUM  BICAR [Concomitant]
  10. BUMEX [Concomitant]
     Active Substance: BUMETANIDE
  11. CARVEDILOL. [Concomitant]
     Active Substance: CARVEDILOL
  12. FEROSUL [Concomitant]
  13. AMMONIUM [Concomitant]
  14. HYDRALAZINE [Concomitant]
     Active Substance: HYDRALAZINE HYDROCHLORIDE
  15. SYMBICORT [Concomitant]
     Active Substance: BUDESONIDE\FORMOTEROL FUMARATE DIHYDRATE
  16. ZOLPIDEM [Concomitant]
     Active Substance: ZOLPIDEM TARTRATE

REACTIONS (1)
  - Hospitalisation [None]
